FAERS Safety Report 5131800-0 (Version None)
Quarter: 2006Q4

REPORT INFORMATION
  Report Type: 
  Country: None (occurrence: None)
  Receive Date: 20061016
  Receipt Date: 20061003
  Transmission Date: 20070319
  Serious: Yes (Death)
  Sender: FDA-Public Use
  Company Number: 2006102969

PATIENT
  Age: 76 Year
  Sex: Male

DRUGS (3)
  1. LINEZOLID [Suspect]
     Indication: SEPTIC SHOCK
  2. ANTIINFLAMMATORY/ANTIRHEUMATIC NON-STEROIDS (ANTIINFLAMMATORY/ANTIRHEU [Concomitant]
  3. ALL OTHER THERAPEUTIC PRODUCTS (ALL OTHER THERAPEUTICA PRODUCTS) [Concomitant]

REACTIONS (2)
  - FUNGAL INFECTION [None]
  - MULTI-ORGAN FAILURE [None]
